FAERS Safety Report 4424982-7 (Version None)
Quarter: 2004Q3

REPORT INFORMATION
  Report Type: 
  Country: None (occurrence: None)
  Receive Date: 20040809
  Receipt Date: 20040730
  Transmission Date: 20050211
  Serious: Yes (Hospitalization)
  Sender: FDA-Public Use
  Company Number: US-AMGEN-US085604

PATIENT
  Age: 59 Year
  Sex: Female

DRUGS (4)
  1. ENBREL [Suspect]
     Indication: PSORIATIC ARTHROPATHY
     Dosage: 25 MG, 2 IN 1 WEEKS, SC
     Route: 058
     Dates: start: 20040202
  2. LEVOTHYROXINE SODIUM [Concomitant]
  3. PRAMIPEXOLE DIHYDROCHLORIDE [Concomitant]
  4. TRAMADOL HCL [Concomitant]

REACTIONS (2)
  - ABDOMINAL PAIN [None]
  - DIVERTICULITIS [None]
